FAERS Safety Report 7549007-6 (Version None)
Quarter: 2011Q2

REPORT INFORMATION
  Report Type: 
  Country: None (occurrence: None)
  Receive Date: 20110615
  Receipt Date: 20110602
  Transmission Date: 20111010
  Serious: Yes (Disabling)
  Sender: FDA-Public Use
  Company Number: CA-ROCHE-780383

PATIENT
  Age: 31 Year
  Sex: Female
  Weight: 49 kg

DRUGS (7)
  1. ATIVAN [Suspect]
     Route: 065
  2. PROPRANOLOL [Suspect]
     Route: 048
  3. PROPRANOLOL [Suspect]
     Route: 048
  4. ATIVAN [Suspect]
     Dosage: DOSE: 0.5
     Route: 065
  5. PROPRANOLOL [Suspect]
     Route: 048
  6. ATIVAN [Suspect]
     Route: 065
  7. VALIUM [Suspect]
     Route: 048

REACTIONS (17)
  - CONFUSIONAL STATE [None]
  - DISSOCIATION [None]
  - PSEUDODEMENTIA [None]
  - SOMNOLENCE [None]
  - DYSGEUSIA [None]
  - RAYNAUD'S PHENOMENON [None]
  - PALPITATIONS [None]
  - ACNE [None]
  - AMNESIA [None]
  - DISORIENTATION [None]
  - SUICIDAL IDEATION [None]
  - DECREASED APPETITE [None]
  - HYPOSMIA [None]
  - DEPRESSION [None]
  - HYPOTENSION [None]
  - PERIPHERAL COLDNESS [None]
  - LETHARGY [None]
